FAERS Safety Report 9013586 (Version 1)
Quarter: 2013Q1

REPORT INFORMATION
  Report Type: Spontaneous
  Country: US (occurrence: None)
  Receive Date: 20130107
  Receipt Date: 20130107
  Transmission Date: 20140127
  Serious: Yes (Life-Threatening, Hospitalization)
  Sender: FDA-Public Use
  Company Number: None

PATIENT
  Age: 70 Year
  Sex: Female
  Weight: 99.79 kg

DRUGS (1)
  1. TRAMADOL HCL 50MG CARAC [Suspect]
     Indication: SPINAL OSTEOARTHRITIS
     Dosage: 1-2 EVERY 4 HOURS PO
     Route: 048
     Dates: start: 20090501, end: 20121223

REACTIONS (7)
  - Drug dose omission [None]
  - Blood pressure increased [None]
  - Anxiety [None]
  - Fear [None]
  - Formication [None]
  - Headache [None]
  - Insomnia [None]
